FAERS Safety Report 17733852 (Version 2)
Quarter: 2020Q2

REPORT INFORMATION
  Report Type: Spontaneous
  Country: US (occurrence: US)
  Receive Date: 20200501
  Receipt Date: 20200625
  Transmission Date: 20200714
  Serious: No
  Sender: FDA-Public Use
  Company Number: US-GLAXOSMITHKLINE-US2020AMR074435

PATIENT

DRUGS (1)
  1. ALLI [Suspect]
     Active Substance: ORLISTAT
     Indication: PRODUCT USED FOR UNKNOWN INDICATION
     Dosage: UNK

REACTIONS (8)
  - Abdominal pain upper [Unknown]
  - Abdominal distension [Unknown]
  - Malaise [Recovered/Resolved]
  - Drug ineffective [Unknown]
  - Hypotension [Unknown]
  - Constipation [Unknown]
  - Abdominal discomfort [Unknown]
  - Product complaint [Unknown]
